FAERS Safety Report 24202463 (Version 2)
Quarter: 2024Q3

REPORT INFORMATION
  Report Type: Spontaneous
  Country: US (occurrence: None)
  Receive Date: 20240813
  Receipt Date: 20240911
  Transmission Date: 20241017
  Serious: Yes (Death)
  Sender: MDD OPERATIONS
  Company Number: US-MDD US Operations-MDD202408-002817

PATIENT
  Age: 88 Year
  Sex: Female

DRUGS (2)
  1. APOKYN [Suspect]
     Active Substance: APOMORPHINE HYDROCHLORIDE
     Indication: Parkinson^s disease
  2. APOKYN [Suspect]
     Active Substance: APOMORPHINE HYDROCHLORIDE
     Indication: On and off phenomenon
     Dosage: 3 ML CARTRIDGE 1 EA CART
     Route: 058

REACTIONS (1)
  - Fall [Fatal]

NARRATIVE: CASE EVENT DATE: 20240726
